FAERS Safety Report 24149861 (Version 4)
Quarter: 2025Q1

REPORT INFORMATION
  Report Type: Report from Study
  Country: CN (occurrence: CN)
  Receive Date: 20240730
  Receipt Date: 20250213
  Transmission Date: 20250408
  Serious: Yes (Hospitalization, Other)
  Sender: ROCHE
  Company Number: CN-ROCHE-10000028979

PATIENT
  Age: 69 Year
  Sex: Male
  Weight: 50 kg

DRUGS (6)
  1. POLATUZUMAB VEDOTIN [Suspect]
     Active Substance: POLATUZUMAB VEDOTIN
     Indication: Diffuse large B-cell lymphoma
     Route: 042
     Dates: start: 20240225, end: 20240225
  2. GEMCITABINE [Suspect]
     Active Substance: GEMCITABINE
     Indication: Diffuse large B-cell lymphoma
     Route: 065
  3. OXALIPLATIN [Suspect]
     Active Substance: OXALIPLATIN
     Indication: Diffuse large B-cell lymphoma
     Route: 065
  4. RITUXIMAB [Suspect]
     Active Substance: RITUXIMAB
     Indication: Diffuse large B-cell lymphoma
     Route: 042
     Dates: start: 20240224, end: 20240224
  5. CEFOPERAZONE SODIUM [Concomitant]
     Active Substance: CEFOPERAZONE SODIUM
     Route: 050
     Dates: start: 202403, end: 202404
  6. SULBACTAM SODIUM [Concomitant]
     Active Substance: SULBACTAM SODIUM
     Route: 050
     Dates: start: 202403, end: 202404

REACTIONS (8)
  - Cardiac failure [Not Recovered/Not Resolved]
  - Jaundice cholestatic [Recovered/Resolved]
  - Anaemia [Not Recovered/Not Resolved]
  - Liver injury [Not Recovered/Not Resolved]
  - Hypoproteinaemia [Not Recovered/Not Resolved]
  - Platelet count decreased [Not Recovered/Not Resolved]
  - Electrolyte imbalance [Not Recovered/Not Resolved]
  - Gastrointestinal fungal infection [Not Recovered/Not Resolved]

NARRATIVE: CASE EVENT DATE: 20240325
